FAERS Safety Report 8375645-7 (Version None)
Quarter: 2012Q2

REPORT INFORMATION
  Report Type: 
  Country: None (occurrence: None)
  Receive Date: 20120522
  Receipt Date: 20120516
  Transmission Date: 20120825
  Serious: No
  Sender: FDA-Public Use
  Company Number: US-PFIZER INC-2012120261

PATIENT
  Sex: Female

DRUGS (1)
  1. SUTENT [Suspect]
     Indication: HEAD AND NECK CANCER STAGE IV
     Dosage: 37.5 MG, DAILY

REACTIONS (5)
  - DIARRHOEA [None]
  - HEADACHE [None]
  - PLATELET COUNT DECREASED [None]
  - HYPERTENSION [None]
  - WHITE BLOOD CELL COUNT DECREASED [None]
